FAERS Safety Report 21532503 (Version 4)
Quarter: 2022Q4

REPORT INFORMATION
  Report Type: Spontaneous
  Country: US (occurrence: US)
  Receive Date: 20221101
  Receipt Date: 20221228
  Transmission Date: 20230113
  Serious: Yes (Other)
  Sender: FDA-Public Use
  Company Number: US-ORGANON-O2210USA001867

PATIENT
  Age: 23 Year
  Sex: Female
  Weight: 110.67 kg

DRUGS (3)
  1. NEXPLANON [Suspect]
     Active Substance: ETONOGESTREL
     Dosage: 1 IMPLANT
     Route: 059
     Dates: start: 20191014, end: 20221014
  2. NEXPLANON [Suspect]
     Active Substance: ETONOGESTREL
     Dosage: 1 IMPLANT IN LEFT UPPER ARM
     Route: 059
     Dates: start: 20221014, end: 20221021
  3. NEXPLANON [Suspect]
     Active Substance: ETONOGESTREL
     Dosage: 1 IMPLANT IN THE SAME ARM, DIFFERENT SITE SLIGHTLY HIGHER THAN ORIGINAL INSERTION SITE
     Route: 059
     Dates: start: 20221021, end: 20221024

REACTIONS (9)
  - Device expulsion [Recovered/Resolved]
  - Device expulsion [Recovered/Resolved]
  - Implant site pruritus [Unknown]
  - Implant site erythema [Unknown]
  - Implant site inflammation [Unknown]
  - Implant site pain [Unknown]
  - Implant site irritation [Unknown]
  - Complication of device removal [Recovered/Resolved]
  - Wrong technique in product usage process [Unknown]

NARRATIVE: CASE EVENT DATE: 20221001
